FAERS Safety Report 9132602 (Version 1)
Quarter: 2013Q1

REPORT INFORMATION
  Report Type: Spontaneous
  Country: US (occurrence: US)
  Receive Date: 20130120
  Receipt Date: 20130120
  Transmission Date: 20140127
  Serious: No
  Sender: FDA-Public Use
  Company Number: US-ALLERGAN-1212872US

PATIENT
  Age: 40 Year
  Sex: Male

DRUGS (1)
  1. BOTOX? [Suspect]
     Indication: HYPERTONIA
     Dosage: 175 UNITS, SINGLE
     Route: 030
     Dates: start: 20120911, end: 20120911

REACTIONS (3)
  - Blood pressure decreased [Recovered/Resolved]
  - Heart rate decreased [Recovered/Resolved]
  - Cold sweat [Recovered/Resolved]
